FAERS Safety Report 12464606 (Version 1)
Quarter: 2016Q2

REPORT INFORMATION
  Report Type: Spontaneous
  Country: US (occurrence: None)
  Receive Date: 20160613
  Receipt Date: 20160613
  Transmission Date: 20160815
  Serious: Yes (Life-Threatening, Hospitalization, Other)
  Sender: FDA-Public Use
  Company Number: None

PATIENT
  Age: 25 Year
  Sex: Male
  Weight: 101 kg

DRUGS (3)
  1. LOPERAMIDE, 2MG [Suspect]
     Active Substance: LOPERAMIDE
     Indication: INTENTIONAL OVERDOSE
     Dates: start: 20160428, end: 20160506
  2. LOPERAMIDE, 2MG [Suspect]
     Active Substance: LOPERAMIDE
     Indication: DRUG ABUSE
     Dates: start: 20160428, end: 20160506
  3. SEROQUEL [Concomitant]
     Active Substance: QUETIAPINE FUMARATE

REACTIONS (6)
  - Electrocardiogram QT prolonged [None]
  - Electrocardiogram QRS complex prolonged [None]
  - Ankle fracture [None]
  - Vertigo [None]
  - Dizziness [None]
  - Road traffic accident [None]

NARRATIVE: CASE EVENT DATE: 20160506
